FAERS Safety Report 4401000-8 (Version None)
Quarter: 2004Q3

REPORT INFORMATION
  Report Type: 
  Country: None (occurrence: None)
  Receive Date: 20040907
  Receipt Date: 20030912
  Transmission Date: 20050211
  Serious: No
  Sender: FDA-Public Use
  Company Number: US-BRISTOL-MYERS SQUIBB COMPANY-12381703

PATIENT
  Age: 78 Year
  Sex: Male
  Weight: 57 kg

DRUGS (32)
  1. WARFARIN SODIUM [Suspect]
     Indication: PROPHYLAXIS
     Route: 048
     Dates: start: 20021225
  2. DIGITEK [Concomitant]
  3. TRIAMTERENE [Concomitant]
  4. NIASPAN [Concomitant]
  5. COREG [Concomitant]
  6. ZOCOR [Concomitant]
  7. PANCREASE [Concomitant]
  8. TRICOR [Concomitant]
  9. MULTI-VITAMIN [Concomitant]
  10. VITAMIN B COMPLEX CAP [Concomitant]
  11. QUERCETIN [Concomitant]
  12. VITAMIN C [Concomitant]
  13. BROMELAIN [Concomitant]
  14. HAWTHORN [Concomitant]
  15. VITAMIN E [Concomitant]
  16. SAW PALMETTO [Concomitant]
  17. EPA DHA [Concomitant]
  18. CALCIUM [Concomitant]
  19. ASPIRIN [Concomitant]
  20. FOLIC ACID [Concomitant]
  21. MAGNESIUM [Concomitant]
  22. POTASSIUM [Concomitant]
  23. LYSINE [Concomitant]
  24. COENZYME Q10 [Concomitant]
  25. CAROTENE [Concomitant]
  26. BILE SALTS [Concomitant]
  27. GLUTATHIONE [Concomitant]
  28. TAURINE [Concomitant]
  29. BILBERRY [Concomitant]
  30. LUTEIN [Concomitant]
  31. NAC [Concomitant]
  32. VITAMIN B-12 [Concomitant]

REACTIONS (1)
  - INTERNATIONAL NORMALISED RATIO DECREASED [None]
